FAERS Safety Report 13371184 (Version 1)
Quarter: 2017Q1

REPORT INFORMATION
  Report Type: Spontaneous
  Country: IT (occurrence: IT)
  Receive Date: 20170324
  Receipt Date: 20170324
  Transmission Date: 20170429
  Serious: Yes (Other)
  Sender: FDA-Public Use
  Company Number: IT-PFIZER INC-2017124424

PATIENT
  Age: 81 Year
  Sex: Male
  Weight: 75 kg

DRUGS (3)
  1. UNASYN [Suspect]
     Active Substance: AMPICILLIN SODIUM\SULBACTAM SODIUM
     Dosage: 3 G, AS NEEDED
     Route: 042
     Dates: start: 20170318, end: 20170318
  2. SOLU-MEDROL [Concomitant]
     Active Substance: METHYLPREDNISOLONE SODIUM SUCCINATE
     Indication: PARAESTHESIA
     Dosage: 1000 MG, UNK
     Route: 042
     Dates: start: 20170318, end: 20170318
  3. TETANUS GAMMA /02139601/ [Suspect]
     Active Substance: HUMAN CLOSTRIDIUM TETANI TOXOID IMMUNE GLOBULIN
     Indication: WOUND
     Dosage: 250 IU, AS NEEDED
     Route: 030
     Dates: start: 20170318, end: 20170318

REACTIONS (5)
  - Urticaria [Recovered/Resolved]
  - Angioedema [Recovered/Resolved]
  - Tremor [Recovered/Resolved]
  - Hypotension [Recovered/Resolved]
  - Hypoxia [Recovered/Resolved]

NARRATIVE: CASE EVENT DATE: 20170318
